FAERS Safety Report 11397245 (Version 1)
Quarter: 2015Q3

REPORT INFORMATION
  Report Type: Spontaneous
  Country: DE (occurrence: DE)
  Receive Date: 20150819
  Receipt Date: 20150819
  Transmission Date: 20151125
  Serious: Yes (Hospitalization)
  Sender: FDA-Public Use
  Company Number: DE-TEVA-583690GER

PATIENT
  Age: 47 Year
  Sex: Male

DRUGS (1)
  1. TERBINAFIN ABZ 250 MG TABLETTEN [Suspect]
     Active Substance: TERBINAFINE
     Indication: ONYCHOMYCOSIS
     Route: 048
     Dates: start: 20150428, end: 201505

REACTIONS (1)
  - Obsessive thoughts [Recovered/Resolved]

NARRATIVE: CASE EVENT DATE: 201505
